FAERS Safety Report 9988620 (Version 3)
Quarter: 2014Q2

REPORT INFORMATION
  Report Type: Spontaneous
  Country: IT (occurrence: IT)
  Receive Date: 20140310
  Receipt Date: 20140509
  Transmission Date: 20141212
  Serious: Yes (Hospitalization)
  Sender: FDA-Public Use
  Company Number: IT-009507513-1401ITA005907

PATIENT
  Age: 57 Year
  Sex: Female

DRUGS (2)
  1. VANTAVO [Suspect]
     Indication: OSTEOPOROSIS PROPHYLAXIS
     Dosage: 70MG/2800UI, CYCLIC
     Route: 048
     Dates: start: 201306
  2. EUTIROX [Concomitant]
     Indication: AUTOIMMUNE THYROIDITIS
     Dosage: 100 MG, UNK
     Route: 048

REACTIONS (4)
  - Retro-orbital neoplasm [Recovering/Resolving]
  - Eye oedema [Recovering/Resolving]
  - Headache [Recovering/Resolving]
  - Uveitis [Recovering/Resolving]
